FAERS Safety Report 21778987 (Version 1)
Quarter: 2022Q4

REPORT INFORMATION
  Report Type: Spontaneous
  Country: IT (occurrence: IT)
  Receive Date: 20221226
  Receipt Date: 20221226
  Transmission Date: 20230113
  Serious: Yes (Hospitalization)
  Sender: FDA-Public Use
  Company Number: None

PATIENT
  Age: 84 Year
  Sex: Male

DRUGS (1)
  1. AMOXICILLIN AND CLAVULANATE POTASSIUM [Suspect]
     Active Substance: AMOXICILLIN\CLAVULANATE POTASSIUM
     Indication: Oropharyngeal pain
     Dosage: 1 DOSAGE FORM (AUGMENTIN 875+125MG, UNICA SOMMINISTRAZIONE, SPECIALITA MEDICINALE ASSUNTA AUGMENTIN,
     Route: 048
     Dates: start: 20221014, end: 20221014

REACTIONS (5)
  - Respiratory distress [Recovered/Resolved]
  - Stridor [Recovered/Resolved]
  - Pruritus [Recovered/Resolved]
  - Erythema [Recovered/Resolved]
  - Vomiting [Recovered/Resolved]

NARRATIVE: CASE EVENT DATE: 20221014
